FAERS Safety Report 8542458-2 (Version None)
Quarter: 2012Q3

REPORT INFORMATION
  Report Type: 
  Country: None (occurrence: None)
  Receive Date: 20120726
  Receipt Date: 20111227
  Transmission Date: 20120928
  Serious: Yes (Hospitalization, Other)
  Sender: FDA-Public Use
  Company Number: US-ASTRAZENECA-2008UW13147

PATIENT
  Age: 12649 Day
  Sex: Male

DRUGS (9)
  1. SEROQUEL [Suspect]
     Indication: AGITATION
     Route: 048
     Dates: start: 20031117, end: 20050811
  2. SEROQUEL [Suspect]
     Route: 048
     Dates: start: 20041002
  3. GUAIFENESIN [Concomitant]
     Dates: start: 20041207
  4. PROMETHAZINE [Concomitant]
  5. SEROQUEL [Suspect]
     Indication: DEPRESSION
     Route: 048
     Dates: start: 20031117, end: 20050811
  6. SEROQUEL [Suspect]
     Indication: ANXIETY
     Route: 048
     Dates: start: 20031117, end: 20050811
  7. SEROQUEL [Suspect]
     Route: 048
     Dates: start: 20041002
  8. SEROQUEL [Suspect]
     Route: 048
     Dates: start: 20041002
  9. DEPAKOTE ER [Concomitant]
     Dates: start: 20041002

REACTIONS (3)
  - TARDIVE DYSKINESIA [None]
  - TYPE 2 DIABETES MELLITUS [None]
  - NEUROLEPTIC MALIGNANT SYNDROME [None]
